FAERS Safety Report 13732243 (Version 2)
Quarter: 2017Q3

REPORT INFORMATION
  Report Type: Spontaneous
  Country: US (occurrence: US)
  Receive Date: 20170707
  Receipt Date: 20170731
  Transmission Date: 20171127
  Serious: No
  Sender: FDA-Public Use
  Company Number: US-JNJFOC-20170616338

PATIENT
  Sex: Female

DRUGS (2)
  1. RISPERDAL M-TAB [Concomitant]
     Active Substance: RISPERIDONE
     Dosage: P.R.N
     Route: 048
  2. INVEGA SUSTENNA [Suspect]
     Active Substance: PALIPERIDONE PALMITATE
     Indication: PRODUCT USED FOR UNKNOWN INDICATION
     Route: 030

REACTIONS (6)
  - Fatigue [Unknown]
  - Extrapyramidal disorder [Unknown]
  - Mood swings [Unknown]
  - Therapeutic response decreased [Unknown]
  - Paranoia [Unknown]
  - Hallucination [Unknown]
